FAERS Safety Report 6150624-9 (Version None)
Quarter: 2009Q2

REPORT INFORMATION
  Report Type: 
  Country: None (occurrence: None)
  Receive Date: 20090409
  Receipt Date: 20090326
  Transmission Date: 20091009
  Serious: Yes (Hospitalization)
  Sender: FDA-Public Use
  Company Number: JP-GENENTECH-276327

PATIENT
  Sex: Male
  Weight: 57 kg

DRUGS (4)
  1. AVASTIN [Suspect]
     Indication: RECTAL CANCER
     Dosage: 5 MG/KG, Q2W
     Route: 042
     Dates: start: 20080708, end: 20090107
  2. OXALIPLATIN [Suspect]
     Indication: COLORECTAL CANCER METASTATIC
     Dosage: 100 MG, Q2W
     Route: 041
     Dates: start: 20080708, end: 20090107
  3. FLUOROURACIL [Suspect]
     Indication: COLORECTAL CANCER METASTATIC
     Dosage: 500 MG, UNK
     Route: 042
     Dates: start: 20080708, end: 20090107
  4. CALCIUM LEVOFOLINATE [Suspect]
     Indication: COLORECTAL CANCER METASTATIC
     Dosage: 150 MG, UNK
     Route: 041
     Dates: start: 20080708, end: 20090107

REACTIONS (2)
  - DRUG ERUPTION [None]
  - INTERSTITIAL LUNG DISEASE [None]
